FAERS Safety Report 6582724-3 (Version None)
Quarter: 2010Q1

REPORT INFORMATION
  Report Type: 
  Country: None (occurrence: None)
  Receive Date: 20100216
  Receipt Date: 20100204
  Transmission Date: 20100710
  Serious: Yes (Life-Threatening, Hospitalization)
  Sender: FDA-Public Use
  Company Number: US-SANOFI-AVENTIS-2010SA006441

PATIENT
  Age: 72 Year
  Sex: Male
  Weight: 113 kg

DRUGS (9)
  1. DOCETAXEL [Suspect]
     Indication: PROSTATE CANCER
     Route: 041
     Dates: start: 20091130, end: 20091130
  2. DOCETAXEL [Suspect]
     Route: 041
     Dates: start: 20100104, end: 20100104
  3. BLINDED THERAPY [Suspect]
     Indication: PROSTATE CANCER
     Route: 048
     Dates: start: 20091130, end: 20100113
  4. PREDNISONE [Suspect]
     Indication: PROSTATE CANCER
     Route: 048
     Dates: start: 20091130, end: 20100104
  5. DEXAMETHASONE [Suspect]
     Indication: PREMEDICATION
     Dates: start: 20091130, end: 20100113
  6. COREG [Concomitant]
  7. FLEXERIL [Concomitant]
  8. PRINIVIL [Concomitant]
  9. VICODIN [Concomitant]

REACTIONS (7)
  - DYSPNOEA [None]
  - FRACTURE [None]
  - HYPOCALCAEMIA [None]
  - HYPOKALAEMIA [None]
  - HYPOTENSION [None]
  - PNEUMONIA [None]
  - SEPSIS [None]
